FAERS Safety Report 24210198 (Version 3)
Quarter: 2025Q3

REPORT INFORMATION
  Report Type: Report from Study
  Country: EU (occurrence: EU)
  Receive Date: 20240814
  Receipt Date: 20250807
  Transmission Date: 20251020
  Serious: Yes (Other)
  Sender: TAKEDA
  Company Number: EU-TAKEDA-2024TUS079926

PATIENT
  Age: 25 Year
  Sex: Male
  Weight: 68 kg

DRUGS (1)
  1. VEDOLIZUMAB [Suspect]
     Active Substance: VEDOLIZUMAB
     Indication: Inflammatory bowel disease

REACTIONS (4)
  - Tubulointerstitial nephritis [Recovered/Resolved]
  - Normocytic anaemia [Unknown]
  - C-reactive protein increased [Unknown]
  - Renal function test abnormal [Unknown]

NARRATIVE: CASE EVENT DATE: 20230601
